FAERS Safety Report 12484517 (Version 1)
Quarter: 2016Q2

REPORT INFORMATION
  Report Type: Spontaneous
  Country: TH (occurrence: TH)
  Receive Date: 20160621
  Receipt Date: 20160621
  Transmission Date: 20160815
  Serious: Yes (Other)
  Sender: FDA-Public Use
  Company Number: TH-PFIZER INC-2016304549

PATIENT
  Age: 40 Year
  Sex: Female

DRUGS (14)
  1. SIMPONI [Suspect]
     Active Substance: GOLIMUMAB
     Dosage: 50 MG
  2. ENBREL [Suspect]
     Active Substance: ETANERCEPT
     Dosage: 25 MG WEEKLY
  3. METHOTREXATE [Suspect]
     Active Substance: METHOTREXATE
     Dosage: 2 TABLETS, WEEKLY
  4. METHOTREXATE [Suspect]
     Active Substance: METHOTREXATE
     Dosage: 1 TABLET, WEEKLY
  5. ENBREL [Suspect]
     Active Substance: ETANERCEPT
     Indication: RHEUMATOID ARTHRITIS
     Dosage: 50 MG, WEEKLY
  6. METHOTREXATE [Suspect]
     Active Substance: METHOTREXATE
     Dosage: 1 TABLET, WEEKLY
  7. METHOTREXATE [Suspect]
     Active Substance: METHOTREXATE
     Dosage: 1 TABLET, WEEKLY
  8. ENBREL [Suspect]
     Active Substance: ETANERCEPT
     Dosage: UNK
  9. SIMPONI [Suspect]
     Active Substance: GOLIMUMAB
     Dosage: 50 MG, MONTHLY
  10. METHOTREXATE [Suspect]
     Active Substance: METHOTREXATE
     Indication: RHEUMATOID ARTHRITIS
     Dosage: 2 TABLETS, WEEKLY
  11. METHOTREXATE [Suspect]
     Active Substance: METHOTREXATE
     Dosage: 2 TABLETS, WEEKLY
  12. METHOTREXATE [Suspect]
     Active Substance: METHOTREXATE
     Dosage: 1 TABLET, WEEKLY
  13. METHOTREXATE [Suspect]
     Active Substance: METHOTREXATE
     Dosage: 2 TABLETS, WEEKLY
  14. ENBREL [Suspect]
     Active Substance: ETANERCEPT
     Dosage: 50 MG, WEEKLY

REACTIONS (4)
  - Infection [Recovered/Resolved]
  - Subcutaneous abscess [Unknown]
  - Condition aggravated [Unknown]
  - Skin infection [Recovered/Resolved]
